FAERS Safety Report 23474592 (Version 1)
Quarter: 2024Q1

REPORT INFORMATION
  Report Type: Report from Study
  Country: IE (occurrence: IE)
  Receive Date: 20240204
  Receipt Date: 20240204
  Transmission Date: 20240409
  Serious: Yes (Other)
  Sender: FDA-Public Use
  Company Number: IE-EXELIXIS-CABO-23063445

PATIENT
  Age: 72 Year
  Sex: Male

DRUGS (5)
  1. CABOMETYX [Suspect]
     Active Substance: CABOZANTINIB S-MALATE
     Indication: Metastatic renal cell carcinoma
     Dosage: 60 MG AS PER PRESCRIPTION FREQUENCY
     Route: 048
     Dates: start: 20230424, end: 20231030
  2. OXYCODONE HYDROCHLORIDE [Concomitant]
     Active Substance: OXYCODONE HYDROCHLORIDE
     Dosage: 5 MG, FREQUENCY: TDS
     Route: 050
  3. ACETAMINOPHEN [Concomitant]
     Active Substance: ACETAMINOPHEN
     Dosage: 1000 MG, PRN
     Route: 050
  4. MOVICOL [Concomitant]
     Active Substance: POLYETHYLENE GLYCOL 3350\POTASSIUM CHLORIDE\SODIUM BICARBONATE\SODIUM CHLORIDE
     Dosage: 1MG, PRN
     Route: 050
  5. MACRODANTIN [Concomitant]
     Active Substance: NITROFURANTOIN
     Dosage: 100 MG, FREQUENCY: Q.D.S
     Route: 065

REACTIONS (10)
  - Metastases to bone [Not Recovered/Not Resolved]
  - Groin pain [Unknown]
  - Urinary tract infection [Recovered/Resolved]
  - Dysuria [Not Recovered/Not Resolved]
  - Nausea [Not Recovered/Not Resolved]
  - Diarrhoea [Not Recovered/Not Resolved]
  - Back pain [Not Recovered/Not Resolved]
  - Pain in extremity [Not Recovered/Not Resolved]
  - Arthralgia [Not Recovered/Not Resolved]
  - Dyspnoea exertional [Not Recovered/Not Resolved]

NARRATIVE: CASE EVENT DATE: 20230426
